FAERS Safety Report 12689778 (Version 1)
Quarter: 2016Q3

REPORT INFORMATION
  Report Type: Spontaneous
  Country: JP (occurrence: JP)
  Receive Date: 20160826
  Receipt Date: 20160826
  Transmission Date: 20161109
  Serious: Yes (Death)
  Sender: FDA-Public Use
  Company Number: JP-B.I. PHARMACEUTICALS,INC./RIDGEFIELD-2016-BI-55539NB

PATIENT
  Age: 8 Decade
  Sex: Male

DRUGS (1)
  1. TRAZENTA [Suspect]
     Active Substance: LINAGLIPTIN
     Indication: DIABETES MELLITUS
     Dosage: 1 ANZ
     Route: 048
     Dates: start: 20160801, end: 20160814

REACTIONS (3)
  - Drowning [Fatal]
  - Overdose [Unknown]
  - Fall [Unknown]

NARRATIVE: CASE EVENT DATE: 20160814
